FAERS Safety Report 10399919 (Version 1)
Quarter: 2014Q3

REPORT INFORMATION
  Report Type: Spontaneous
  Country: GB (occurrence: GB)
  Receive Date: 20140821
  Receipt Date: 20140821
  Transmission Date: 20150326
  Serious: Yes (Hospitalization)
  Sender: FDA-Public Use
  Company Number: GB-GLAXOSMITHKLINE-B1023419A

PATIENT
  Age: 70 Year
  Sex: Male

DRUGS (2)
  1. ELTROMBOPAG [Suspect]
     Active Substance: ELTROMBOPAG
     Indication: WALDENSTROM^S MACROGLOBULINAEMIA
     Dosage: 75MG PER DAY
     Route: 048
     Dates: start: 20140430, end: 20140603
  2. ACICLOVIR [Concomitant]
     Active Substance: ACYCLOVIR
     Indication: HERPES VIRUS INFECTION
     Route: 048

REACTIONS (2)
  - Demyelinating polyneuropathy [Recovering/Resolving]
  - Guillain-Barre syndrome [Recovering/Resolving]

NARRATIVE: CASE EVENT DATE: 201405
